FAERS Safety Report 11836158 (Version 2)
Quarter: 2016Q1

REPORT INFORMATION
  Report Type: Spontaneous
  Country: FR (occurrence: FR)
  Receive Date: 20151215
  Receipt Date: 20160107
  Transmission Date: 20160525
  Serious: Yes (Hospitalization)
  Sender: FDA-Public Use
  Company Number: FR-GUERBET LLC-1045485

PATIENT
  Age: 47 Year
  Sex: Female

DRUGS (15)
  1. METHYLPREDNISOLONE. [Concomitant]
     Active Substance: METHYLPREDNISOLONE
     Dates: start: 20151017, end: 20151022
  2. CORTANCYL(PREDNISONE) [Concomitant]
     Dates: start: 20151023
  3. DOTAREM [Suspect]
     Active Substance: GADOTERATE MEGLUMINE
     Indication: NUCLEAR MAGNETIC RESONANCE IMAGING
     Dates: start: 20151021, end: 20151021
  4. TRINORDIOL(ETHINYLESTRADIOL,LEVONORGESTREL) [Concomitant]
  5. MANNITOL. [Concomitant]
     Active Substance: MANNITOL
     Dates: start: 20151021, end: 20151021
  6. TRAMADOL. [Concomitant]
     Active Substance: TRAMADOL
     Dates: start: 20151016, end: 20151016
  7. KLEAN PREP(MACROGOL 3350, POTASSIUM CHLORIDE, SODIUM BICARBONATE, SODI [Concomitant]
     Dates: start: 20151028, end: 20151028
  8. ENGERIX B(HEPATITIS B VACCINE) [Concomitant]
     Dates: start: 20151020, end: 20151020
  9. PREVENAR(PNEUMOCOCCAL VACCINE) [Concomitant]
     Dates: start: 20151020, end: 20151020
  10. ERYTHROCINE(ERYTHROMYCIN)(100 MILLIGRAM) [Concomitant]
     Dates: start: 20151021, end: 20151021
  11. FLAGYL [Concomitant]
     Active Substance: METRONIDAZOLE\METRONIDAZOLE HYDROCHLORIDE
     Route: 048
     Dates: start: 20151016, end: 20151024
  12. GLUCAGEN [Concomitant]
     Active Substance: GLUCAGON HYDROCHLORIDE
     Dates: start: 20151021, end: 20151021
  13. CIPROFLOXACINE [Concomitant]
     Active Substance: CIPROFLOXACIN
     Dates: start: 20151016, end: 20151102
  14. ACUPAN(NEFOPAM HYDROCHLORIDE) [Concomitant]
     Dates: start: 20151017, end: 20151017
  15. LOVENOX [Concomitant]
     Active Substance: ENOXAPARIN SODIUM
     Dates: start: 20151017, end: 20151027

REACTIONS (2)
  - Acute kidney injury [None]
  - Renal tubular necrosis [Recovering/Resolving]

NARRATIVE: CASE EVENT DATE: 20151028
